FAERS Safety Report 13428211 (Version 4)
Quarter: 2017Q2

REPORT INFORMATION
  Report Type: Spontaneous
  Country: US (occurrence: US)
  Receive Date: 20170411
  Receipt Date: 20170519
  Transmission Date: 20170830
  Serious: No
  Sender: FDA-Public Use
  Company Number: US-ACTELION-A-US2017-151561

PATIENT
  Age: 56 Year
  Sex: Female
  Weight: 72.56 kg

DRUGS (5)
  1. UPTRAVI [Suspect]
     Active Substance: SELEXIPAG
     Dosage: 800 UNK, UNK
     Route: 048
  2. OPSUMIT [Suspect]
     Active Substance: MACITENTAN
     Indication: PULMONARY ARTERIAL HYPERTENSION
     Dosage: 10 MG, QD
     Route: 048
  3. UPTRAVI [Suspect]
     Active Substance: SELEXIPAG
     Indication: PULMONARY ARTERIAL HYPERTENSION
     Dosage: 600 MCG, QOD
     Route: 048
     Dates: start: 20170328
  4. COUMADIN [Concomitant]
     Active Substance: WARFARIN SODIUM
  5. TYVASO [Concomitant]
     Active Substance: TREPROSTINIL

REACTIONS (8)
  - Formication [Recovering/Resolving]
  - Inappropriate schedule of drug administration [Unknown]
  - Headache [Recovering/Resolving]
  - Dizziness [Unknown]
  - Nausea [Unknown]
  - Malaise [Unknown]
  - Vomiting [Unknown]
  - Diarrhoea [Unknown]

NARRATIVE: CASE EVENT DATE: 20170328
